FAERS Safety Report 4740502-1 (Version None)
Quarter: 2005Q3

REPORT INFORMATION
  Report Type: 
  Country: None (occurrence: None)
  Receive Date: 20050809
  Receipt Date: 20050727
  Transmission Date: 20060218
  Serious: Yes (Life-Threatening)
  Sender: FDA-Public Use
  Company Number: GXKR2005PL01382

PATIENT
  Age: 5 Year
  Sex: Female

DRUGS (3)
  1. AMOKSIKLAV [Suspect]
     Indication: PROPHYLAXIS
     Dosage: SEE IMAGE
     Route: 048
  2. SOLU-MEDROL [Concomitant]
  3. RANIGAST (RANITIDINE HYDROCHLORIDE) [Concomitant]

REACTIONS (4)
  - ANAPHYLACTIC SHOCK [None]
  - INCORRECT ROUTE OF DRUG ADMINISTRATION [None]
  - LOSS OF CONSCIOUSNESS [None]
  - MEDICATION ERROR [None]
